FAERS Safety Report 7798824-6 (Version None)
Quarter: 2011Q4

REPORT INFORMATION
  Report Type: 
  Country: None (occurrence: None)
  Receive Date: 20111005
  Receipt Date: 20111005
  Transmission Date: 20120403
  Serious: Yes (Other)
  Sender: FDA-Public Use
  Company Number: None

PATIENT
  Age: 89 Year
  Sex: Male

DRUGS (1)
  1. HEPARIN [Suspect]

REACTIONS (7)
  - ATELECTASIS [None]
  - HAEMOPTYSIS [None]
  - COUGH [None]
  - FOREIGN BODY ASPIRATION [None]
  - DYSPHAGIA [None]
  - DYSPNOEA [None]
  - DELIRIUM [None]
